FAERS Safety Report 12246620 (Version 1)
Quarter: 2016Q2

REPORT INFORMATION
  Report Type: Spontaneous
  Country: US (occurrence: US)
  Receive Date: 20160407
  Receipt Date: 20160407
  Transmission Date: 20160815
  Serious: No
  Sender: FDA-Public Use
  Company Number: US-BAYER-2016-066221

PATIENT
  Sex: Male

DRUGS (5)
  1. XANAX [Suspect]
     Active Substance: ALPRAZOLAM
  2. LORATADINE. [Suspect]
     Active Substance: LORATADINE
     Route: 048
  3. LYRICA [Suspect]
     Active Substance: PREGABALIN
  4. LISINOPRIL. [Suspect]
     Active Substance: LISINOPRIL
     Route: 048
  5. CHLORMEZANONE [Suspect]
     Active Substance: CHLORMEZANONE

REACTIONS (2)
  - Pain [Unknown]
  - Intervertebral disc disorder [Unknown]
